FAERS Safety Report 7919233-2 (Version None)
Quarter: 2011Q4

REPORT INFORMATION
  Report Type: 
  Country: None (occurrence: None)
  Receive Date: 20111114
  Receipt Date: 20111027
  Transmission Date: 20120403
  Serious: Yes (Hospitalization)
  Sender: FDA-Public Use
  Company Number: MYCO20110014

PATIENT
  Age: 49 Year
  Sex: Female

DRUGS (5)
  1. CYCLOSPORIN (CICLOSPORIN) (CICLOSPORIN) [Concomitant]
  2. PREDNISOLONE [Concomitant]
  3. METHYLPREDNISOLONE [Concomitant]
  4. MYCOPHENOLATE MOFETIL [Suspect]
     Indication: IMMUNOSUPPRESSION
     Dosage: 2 GM, 1 IN 1 D, ORAL
     Route: 048
     Dates: start: 19961001, end: 19990101
  5. ANTIHUMAN T-LYMPHOCYTE IMMUNOGLOBULIN (ANTILYMPHOCYTE IMMUNOGLOBULIN) [Concomitant]

REACTIONS (4)
  - ATELECTASIS [None]
  - UPPER RESPIRATORY TRACT INFECTION [None]
  - BRONCHIECTASIS [None]
  - WEIGHT DECREASED [None]
